FAERS Safety Report 18257250 (Version 1)
Quarter: 2020Q3

REPORT INFORMATION
  Report Type: Spontaneous
  Country: US (occurrence: US)
  Receive Date: 20200910
  Receipt Date: 20200910
  Transmission Date: 20201103
  Serious: No
  Sender: FDA-Public Use
  Company Number: None

PATIENT
  Age: 72 Year
  Sex: Female

DRUGS (1)
  1. SUTENT [Suspect]
     Active Substance: SUNITINIB MALATE
     Route: 048
     Dates: start: 20200728

REACTIONS (5)
  - Dry eye [None]
  - Cardiac failure [None]
  - Blood pressure increased [None]
  - Adverse drug reaction [None]
  - Abdominal discomfort [None]

NARRATIVE: CASE EVENT DATE: 20200910
